FAERS Safety Report 5174240-0 (Version None)
Quarter: 2006Q4

REPORT INFORMATION
  Report Type: 
  Country: None (occurrence: None)
  Receive Date: 20061214
  Receipt Date: 20061101
  Transmission Date: 20070319
  Serious: Yes (Hospitalization, Disabling, Other)
  Sender: FDA-Public Use
  Company Number: US-ELI_LILLY_AND_COMPANY-US200611000429

PATIENT
  Age: 88 Year
  Sex: Female

DRUGS (5)
  1. PLAVIX                                  /UNK/ [Concomitant]
     Dosage: 75 MG, UNK
  2. LISINOPRIL [Concomitant]
  3. HYDROCHLOROTHIAZIDE [Concomitant]
     Dosage: 10/12.5
  4. FORTEO [Suspect]
     Indication: OSTEOPOROSIS
     Dosage: UNK, UNK
     Dates: start: 20050501, end: 20060401
  5. FORTEO [Suspect]
     Dosage: UNK, UNK
     Dates: start: 20060601

REACTIONS (5)
  - ACCIDENT [None]
  - ANKLE FRACTURE [None]
  - BEDRIDDEN [None]
  - HYPOACUSIS [None]
  - IMMOBILE [None]
